FAERS Safety Report 18725348 (Version 1)
Quarter: 2021Q1

REPORT INFORMATION
  Report Type: Spontaneous
  Country: FR (occurrence: FR)
  Receive Date: 20210111
  Receipt Date: 20210111
  Transmission Date: 20210419
  Serious: Yes (Hospitalization)
  Sender: FDA-Public Use
  Company Number: FR-TEVA-2021-FR-1866058

PATIENT
  Age: 66 Year
  Sex: Female

DRUGS (3)
  1. DISULONE, COMPRIME SECABLE [Concomitant]
     Active Substance: DAPSONE\FERROUS OXALATE
     Route: 048
  2. AMOXICILLINE [Suspect]
     Active Substance: AMOXICILLIN
     Indication: TOOTH ABSCESS
     Dosage: 3 GRAM
     Route: 048
     Dates: start: 20201028, end: 20201102
  3. RAMIPRIL. [Concomitant]
     Active Substance: RAMIPRIL
     Route: 048

REACTIONS (3)
  - Condition aggravated [Recovering/Resolving]
  - Thrombocytopenia [Recovering/Resolving]
  - Vaccination complication [Recovering/Resolving]

NARRATIVE: CASE EVENT DATE: 20201109
